FAERS Safety Report 11047912 (Version 1)
Quarter: 2015Q2

REPORT INFORMATION
  Report Type: Spontaneous
  Country: US (occurrence: US)
  Receive Date: 20150420
  Receipt Date: 20150420
  Transmission Date: 20150821
  Serious: No
  Sender: FDA-Public Use
  Company Number: US-PFIZER INC-2015133560

PATIENT
  Age: 61 Year
  Sex: Male
  Weight: 113 kg

DRUGS (5)
  1. CELECOXIB. [Suspect]
     Active Substance: CELECOXIB
     Indication: ARTHRALGIA
     Dosage: 200MG AS NEEDED DAILY
     Route: 048
  2. METFORMIN [Concomitant]
     Active Substance: METFORMIN HYDROCHLORIDE
     Dosage: 500 MG, 2X/DAY
     Route: 048
  3. BENICAR [Concomitant]
     Active Substance: OLMESARTAN MEDOXOMIL
     Dosage: AT 40MG/12.5MG ONCE DAILY
     Route: 048
  4. ATORVASTATIN [Concomitant]
     Active Substance: ATORVASTATIN
     Indication: HYPERTENSION
     Dosage: 20 MG, 1X/DAY
     Route: 048
  5. CELECOXIB. [Suspect]
     Active Substance: CELECOXIB
     Dosage: 200MG AS NEEDED DAILY
     Route: 048

REACTIONS (2)
  - Drug ineffective [Unknown]
  - Headache [Unknown]
